FAERS Safety Report 10426769 (Version 2)
Quarter: 2014Q3

REPORT INFORMATION
  Report Type: Report from Study
  Country: US (occurrence: US)
  Receive Date: 20140903
  Receipt Date: 20140903
  Transmission Date: 20150326
  Serious: Yes (Death, Other)
  Sender: FDA-Public Use
  Company Number: US-ASTELLAS-2014US011022

PATIENT
  Age: 81 Year
  Sex: Male

DRUGS (2)
  1. ERLOTINIB [Suspect]
     Active Substance: ERLOTINIB
     Indication: MALIGNANT RESPIRATORY TRACT NEOPLASM
     Route: 048
     Dates: start: 200505, end: 20050703
  2. ERLOTINIB [Suspect]
     Active Substance: ERLOTINIB
     Indication: NON-SMALL CELL LUNG CANCER

REACTIONS (5)
  - Diarrhoea [Unknown]
  - Hypophagia [Unknown]
  - Rash [Unknown]
  - Malignant neoplasm progression [Fatal]
  - Fatigue [Unknown]

NARRATIVE: CASE EVENT DATE: 200505
